APPROVED DRUG PRODUCT: METFORMIN HYDROCHLORIDE
Active Ingredient: METFORMIN HYDROCHLORIDE
Strength: 500MG/5ML
Dosage Form/Route: SOLUTION;ORAL
Application: A211309 | Product #001 | TE Code: AB
Applicant: SAPTALIS PHARMACEUTICALS LLC
Approved: Mar 3, 2020 | RLD: No | RS: Yes | Type: RX